FAERS Safety Report 5090274-9 (Version None)
Quarter: 2006Q3

REPORT INFORMATION
  Report Type: 
  Country: None (occurrence: None)
  Receive Date: 20060828
  Receipt Date: 20060630
  Transmission Date: 20061208
  Serious: Yes (Other)
  Sender: FDA-Public Use
  Company Number: US-GLAXOSMITHKLINE-A0610910A

PATIENT
  Sex: Female

DRUGS (2)
  1. WELLBUTRIN [Suspect]
     Indication: SCHIZOPHRENIA
     Dosage: 150MG PER DAY
     Route: 048
  2. RISPERDAL [Concomitant]

REACTIONS (2)
  - CONVULSION [None]
  - MALAISE [None]
